FAERS Safety Report 12777929 (Version 1)
Quarter: 2016Q3

REPORT INFORMATION
  Report Type: Spontaneous
  Country: US (occurrence: US)
  Receive Date: 20160924
  Receipt Date: 20160924
  Transmission Date: 20161109
  Serious: No
  Sender: FDA-Public Use
  Company Number: US-JAZZ-2016-US-010948

PATIENT
  Sex: Male

DRUGS (19)
  1. ASPIRIN EC [Concomitant]
     Active Substance: ASPIRIN
  2. NUVIGIL [Concomitant]
     Active Substance: ARMODAFINIL
  3. COENZYME Q10 [Concomitant]
     Active Substance: UBIDECARENONE
  4. VITAMIN B COMPLEX [Concomitant]
     Active Substance: CYANOCOBALAMIN\DEXPANTHENOL\NIACINAMIDE\PYRIDOXINE HYDROCHLORIDE\RIBOFLAVIN 5^-PHOSPHATE SODIUM\THIAMINE HYDROCHLORIDE\VITAMIN B COMPLEX
  5. LISINOPRIL. [Concomitant]
     Active Substance: LISINOPRIL
  6. LIVALO [Concomitant]
     Active Substance: PITAVASTATIN CALCIUM
  7. MAGNESIUM OXIDE. [Concomitant]
     Active Substance: MAGNESIUM OXIDE
  8. CORTISONE [Concomitant]
     Active Substance: CORTISONE\HYDROCORTISONE
  9. XYREM [Suspect]
     Active Substance: SODIUM OXYBATE
     Indication: NARCOLEPSY
     Dosage: 2.25 G, BID
     Route: 048
     Dates: start: 201510, end: 201510
  10. XYREM [Suspect]
     Active Substance: SODIUM OXYBATE
     Dosage: DOSE ADJUSTMENTS
     Route: 048
     Dates: start: 201510, end: 201604
  11. XYREM [Suspect]
     Active Substance: SODIUM OXYBATE
     Dosage: 3.75 G, BID
     Route: 048
     Dates: start: 201604
  12. MULTIVITAMINS WITH IRON [Concomitant]
     Active Substance: IRON\VITAMINS
  13. AZITHROMYCIN ANHYDROUS. [Concomitant]
     Active Substance: AZITHROMYCIN ANHYDROUS
  14. MUCINEX ALLERGY [Concomitant]
     Active Substance: FEXOFENADINE HYDROCHLORIDE
  15. FENOFIBRATE. [Concomitant]
     Active Substance: FENOFIBRATE
  16. LEVOTHYROXINE. [Concomitant]
     Active Substance: LEVOTHYROXINE
  17. ZETIA [Concomitant]
     Active Substance: EZETIMIBE
  18. PAROXETINE HCL [Concomitant]
     Active Substance: PAROXETINE HYDROCHLORIDE
  19. ASPIRIN ADULT [Concomitant]

REACTIONS (1)
  - Vertigo [Unknown]
